FAERS Safety Report 5165572-0 (Version None)
Quarter: 2006Q4

REPORT INFORMATION
  Report Type: 
  Country: None (occurrence: None)
  Receive Date: 20061206
  Receipt Date: 19970515
  Transmission Date: 20070319
  Serious: Yes (Hospitalization)
  Sender: FDA-Public Use
  Company Number: FR-GLAXOSMITHKLINE-B0046895A

PATIENT

DRUGS (6)
  1. RETROVIR [Suspect]
     Indication: ANTIVIRAL PROPHYLAXIS
  2. EPIVIR [Suspect]
     Indication: ANTIVIRAL PROPHYLAXIS
  3. LAMIVUDINE [Suspect]
     Indication: HIV TEST POSITIVE
     Route: 048
     Dates: start: 19961029, end: 19970212
  4. ZIDOVUDINE [Suspect]
     Indication: HIV TEST POSITIVE
     Route: 048
     Dates: start: 19961029, end: 19970212
  5. MS CONTIN [Concomitant]
     Indication: DRUG DEPENDENCE
  6. METHADONE HCL [Concomitant]
     Indication: DRUG DEPENDENCE

REACTIONS (5)
  - ANAEMIA [None]
  - DRUG WITHDRAWAL SYNDROME [None]
  - HYPERTONIA [None]
  - NEUTROPENIA [None]
  - STRABISMUS [None]
